FAERS Safety Report 9518200 (Version 1)
Quarter: 2013Q3

REPORT INFORMATION
  Report Type: Spontaneous
  Country: US (occurrence: None)
  Receive Date: 20130910
  Receipt Date: 20130910
  Transmission Date: 20140515
  Serious: Yes (Other)
  Sender: FDA-Public Use
  Company Number: None

PATIENT
  Age: 57 Year
  Sex: Female

DRUGS (1)
  1. CYMBALTA [Suspect]
     Indication: NEURALGIA
     Route: 048
     Dates: start: 20121219, end: 20130909

REACTIONS (6)
  - Amnesia [None]
  - Aphasia [None]
  - Visual impairment [None]
  - Dizziness [None]
  - Headache [None]
  - Unevaluable event [None]
